FAERS Safety Report 8793613 (Version 1)
Quarter: 2012Q4

REPORT INFORMATION
  Report Type: 
  Country: FR (occurrence: FR)
  Receive Date: 20120917
  Receipt Date: 20120917
  Transmission Date: 20130627
  Serious: Yes (Hospitalization)
  Sender: FDA-Public Use
  Company Number: FR-GLAXOSMITHKLINE-B0827630A

PATIENT
  Age: 55 Year
  Sex: Male

DRUGS (7)
  1. ZOPHREN [Suspect]
     Indication: HEPATIC NEOPLASM MALIGNANT
     Route: 042
     Dates: start: 20120404
  2. OXALIPLATINE [Suspect]
     Indication: HEPATIC NEOPLASM MALIGNANT
     Route: 042
     Dates: start: 20120404
  3. FLUOROURACIL [Suspect]
     Indication: HEPATIC NEOPLASM MALIGNANT
     Route: 042
     Dates: start: 20120404
  4. EMEND [Concomitant]
  5. SOLUMEDROL [Concomitant]
  6. AMOXICILLIN [Concomitant]
     Indication: BRONCHITIS
     Route: 048
     Dates: start: 201206, end: 201206
  7. HELICIDINE [Concomitant]
     Indication: BRONCHITIS
     Dates: start: 201206

REACTIONS (2)
  - Rash maculo-papular [Recovered/Resolved]
  - Palmar-plantar erythrodysaesthesia syndrome [Recovered/Resolved]
